FAERS Safety Report 22587635 (Version 2)
Quarter: 2023Q2

REPORT INFORMATION
  Report Type: Spontaneous
  Country: US (occurrence: US)
  Receive Date: 20230612
  Receipt Date: 20230619
  Transmission Date: 20230722
  Serious: No
  Sender: FDA-Public Use
  Company Number: US-GSK-US2023079090

PATIENT
  Sex: Female
  Weight: 70.31 kg

DRUGS (2)
  1. ZEJULA [Suspect]
     Active Substance: NIRAPARIB
     Indication: Ovarian cancer
     Dosage: 200 MG, QD
     Route: 048
     Dates: start: 20230531
  2. ELIQUIS [Suspect]
     Active Substance: APIXABAN
     Indication: Product used for unknown indication
     Dosage: UNK

REACTIONS (15)
  - Full blood count abnormal [Unknown]
  - Erythema [Unknown]
  - Swelling face [Unknown]
  - Constipation [Unknown]
  - Nausea [Unknown]
  - Dyspepsia [Unknown]
  - Feeling jittery [Unknown]
  - Condition aggravated [Unknown]
  - Blood pressure increased [Unknown]
  - Blood glucose increased [Unknown]
  - Abdominal discomfort [Unknown]
  - Dehydration [Unknown]
  - Chapped lips [Unknown]
  - Cyanosis [Unknown]
  - Rash macular [Unknown]
